FAERS Safety Report 12917445 (Version 1)
Quarter: 2016Q4

REPORT INFORMATION
  Report Type: Spontaneous
  Country: US (occurrence: US)
  Receive Date: 20161107
  Receipt Date: 20161107
  Transmission Date: 20170207
  Serious: No
  Sender: FDA-Public Use
  Company Number: US-PFIZER INC-2016514668

PATIENT
  Age: 26 Year
  Sex: Female

DRUGS (2)
  1. ZOLOFT [Suspect]
     Active Substance: SERTRALINE HYDROCHLORIDE
     Dosage: UNK
  2. HUMIRA [Interacting]
     Active Substance: ADALIMUMAB
     Indication: COLITIS ULCERATIVE
     Dosage: UNK (40 MG/0.8 ML)
     Route: 058

REACTIONS (3)
  - Night sweats [Unknown]
  - Drug interaction [Unknown]
  - Insomnia [Unknown]

NARRATIVE: CASE EVENT DATE: 2016
